FAERS Safety Report 8294212-7 (Version None)
Quarter: 2012Q2

REPORT INFORMATION
  Report Type: 
  Country: None (occurrence: None)
  Receive Date: 20120418
  Receipt Date: 20120409
  Transmission Date: 20120825
  Serious: Yes (Other)
  Sender: FDA-Public Use
  Company Number: PHEH2012US007624

PATIENT
  Sex: Female

DRUGS (3)
  1. DIOVAN [Suspect]
  2. CARBADILOL [Interacting]
  3. LANTUS [Interacting]

REACTIONS (4)
  - PULMONARY OEDEMA [None]
  - MALAISE [None]
  - DRUG INTERACTION [None]
  - VIRAL INFECTION [None]
